FAERS Safety Report 4495292-7 (Version None)
Quarter: 2004Q4

REPORT INFORMATION
  Report Type: 
  Country: None (occurrence: None)
  Receive Date: 20041108
  Receipt Date: 20040913
  Transmission Date: 20050328
  Serious: No
  Sender: FDA-Public Use
  Company Number: US-GLAXOSMITHKLINE-A0525447A

PATIENT
  Sex: Female

DRUGS (5)
  1. AVANDAMET [Suspect]
     Dosage: 1TAB FOUR TIMES PER DAY
     Route: 048
     Dates: start: 20040601
  2. LABETALOL [Concomitant]
  3. FOSINOPRIL SODIUM [Concomitant]
  4. INDAPAMIDE [Concomitant]
  5. REGLAN [Concomitant]

REACTIONS (1)
  - WEIGHT INCREASED [None]
